FAERS Safety Report 5493697-9 (Version None)
Quarter: 2007Q4

REPORT INFORMATION
  Report Type: 
  Country: None (occurrence: None)
  Receive Date: 20071023
  Receipt Date: 20071015
  Transmission Date: 20080405
  Serious: Yes (Congenital Anomaly)
  Sender: FDA-Public Use
  Company Number: US-ASTRAZENECA-2007AC01995

PATIENT
  Age: 29 Year

DRUGS (3)
  1. ATENOLOL [Suspect]
     Indication: HYPERTENSION
  2. METHYLDOPA [Concomitant]
     Indication: HYPERTENSION
  3. METHYLDOPA [Concomitant]

REACTIONS (2)
  - DRUG EXPOSURE DURING PREGNANCY [None]
  - FOETAL GROWTH RETARDATION [None]
